FAERS Safety Report 8305037-8 (Version None)
Quarter: 2012Q2

REPORT INFORMATION
  Report Type: 
  Country: None (occurrence: None)
  Receive Date: 20120412
  Receipt Date: 20120402
  Transmission Date: 20120825
  Serious: Yes (Death, Hospitalization)
  Sender: FDA-Public Use
  Company Number: 2012031902

PATIENT
  Sex: Female

DRUGS (4)
  1. NUTRITIONAL SUPPLEMENTS (PROTEIN SUPPLEMENTS) [Concomitant]
  2. ALBUMINAR [Suspect]
     Indication: PRODUCT USED FOR UNKNOWN INDICATION
  3. MULTI-VITAMINS [Concomitant]
  4. FUROSEMIDE [Concomitant]

REACTIONS (6)
  - RENAL IMPAIRMENT [None]
  - RECTAL HAEMORRHAGE [None]
  - ABDOMINAL DISCOMFORT [None]
  - EUPHORIC MOOD [None]
  - CHROMATURIA [None]
  - HEART RATE INCREASED [None]
